FAERS Safety Report 9260244 (Version 1)
Quarter: 2013Q2

REPORT INFORMATION
  Report Type: Spontaneous
  Country: US (occurrence: US)
  Receive Date: 20130429
  Receipt Date: 20130429
  Transmission Date: 20140414
  Serious: No
  Sender: FDA-Public Use
  Company Number: US-PFIZER INC-2013128409

PATIENT
  Age: 62 Year
  Sex: Female

DRUGS (7)
  1. DOXYCYCLINE HYCLATE [Suspect]
     Dosage: UNK
  2. MOTRIN [Suspect]
     Dosage: UNK
  3. CECLOR [Suspect]
     Dosage: UNK
  4. POLYMYCIN [Suspect]
     Dosage: UNK
  5. POLYSPORIN [Suspect]
     Dosage: UNK
  6. BACTRIM [Suspect]
     Dosage: UNK
  7. KEFLEX [Suspect]
     Dosage: UNK

REACTIONS (3)
  - Rash [Unknown]
  - Blister [Unknown]
  - Drug hypersensitivity [Unknown]
